FAERS Safety Report 12856640 (Version 1)
Quarter: 2016Q4

REPORT INFORMATION
  Report Type: Spontaneous
  Country: US (occurrence: US)
  Receive Date: 20161018
  Receipt Date: 20161018
  Transmission Date: 20170207
  Serious: Yes (Death)
  Sender: FDA-Public Use
  Company Number: None

PATIENT
  Sex: Male

DRUGS (1)
  1. VIDAZA [Suspect]
     Active Substance: AZACITIDINE
     Dates: start: 201601

REACTIONS (3)
  - Impaired self-care [None]
  - Extremity necrosis [None]
  - Finger amputation [None]

NARRATIVE: CASE EVENT DATE: 20160912
